FAERS Safety Report 21660127 (Version 1)
Quarter: 2022Q4

REPORT INFORMATION
  Report Type: Spontaneous
  Country: CH (occurrence: CH)
  Receive Date: 20221130
  Receipt Date: 20221130
  Transmission Date: 20230113
  Serious: Yes (Hospitalization)
  Sender: FDA-Public Use
  Company Number: None

PATIENT
  Age: 71 Year
  Sex: Female

DRUGS (32)
  1. STALEVO [Suspect]
     Active Substance: CARBIDOPA\ENTACAPONE\LEVODOPA
     Indication: Product used for unknown indication
     Dosage: 100/25/200 MG 1 TAB 4X/D
     Route: 065
     Dates: end: 20221106
  2. STALEVO [Suspect]
     Active Substance: CARBIDOPA\ENTACAPONE\LEVODOPA
     Dosage: 75/18.75/200  1 TAB 4X/D
     Route: 065
     Dates: start: 20221106
  3. CARBIDOPA\LEVODOPA [Suspect]
     Active Substance: CARBIDOPA\LEVODOPA
     Indication: Product used for unknown indication
     Dosage: STRENGTH: 50/200 MG
     Route: 065
     Dates: end: 20221107
  4. CARBIDOPA\LEVODOPA [Suspect]
     Active Substance: CARBIDOPA\LEVODOPA
     Route: 065
  5. PRAMIPEXOLE [Suspect]
     Active Substance: PRAMIPEXOLE
     Indication: Product used for unknown indication
     Dosage: 1 TAB. NOT RESUMED DURING HOSPITALISATION
     Route: 065
     Dates: end: 20221019
  6. SINEMET [Suspect]
     Active Substance: CARBIDOPA\LEVODOPA
     Indication: Product used for unknown indication
     Dosage: LEVODOPA: 25MG; CARBIDOPA: 100MG
     Route: 065
     Dates: start: 20221108
  7. ESLICARBAZEPINE ACETATE [Suspect]
     Active Substance: ESLICARBAZEPINE ACETATE
     Indication: Product used for unknown indication
     Route: 065
     Dates: start: 20221021
  8. ESLICARBAZEPINE ACETATE [Suspect]
     Active Substance: ESLICARBAZEPINE ACETATE
     Route: 065
     Dates: end: 20221020
  9. MORPHINE HYDROCHLORIDE [Suspect]
     Active Substance: MORPHINE HYDROCHLORIDE
     Indication: Product used for unknown indication
     Dosage: STRENGTH: 2.5 MG
     Route: 065
     Dates: start: 20221101, end: 20221102
  10. MORPHINE HYDROCHLORIDE [Suspect]
     Active Substance: MORPHINE HYDROCHLORIDE
     Dosage: STRENGTH: 5 MG
     Route: 065
     Dates: start: 20221102, end: 20221108
  11. MORPHINE HYDROCHLORIDE [Suspect]
     Active Substance: MORPHINE HYDROCHLORIDE
     Dosage: STRENGTH: 2.5 MG
     Route: 065
     Dates: start: 20221020, end: 20221021
  12. MORPHINE [Suspect]
     Active Substance: MORPHINE
     Indication: Product used for unknown indication
     Dosage: 10 MG 6X/D  MAXIMUM ; AS NECESSARY. MORPHINE SULFATE: 20MG
     Route: 065
     Dates: start: 20221022, end: 20221026
  13. MORPHINE [Suspect]
     Active Substance: MORPHINE
     Dosage: STRENGTH: 10 MG
     Route: 048
     Dates: start: 20221021, end: 20221021
  14. MORPHINE [Suspect]
     Active Substance: MORPHINE
     Dosage: STRENGTH: 5 MG
     Route: 048
     Dates: start: 20221022, end: 20221024
  15. VENLAFAXINE [Suspect]
     Active Substance: VENLAFAXINE HYDROCHLORIDE
     Indication: Prophylaxis
     Dosage: STRENGTH: 37.5 MG
     Route: 065
     Dates: end: 20221027
  16. VENLAFAXINE [Suspect]
     Active Substance: VENLAFAXINE HYDROCHLORIDE
     Route: 065
     Dates: start: 20221028
  17. BENSERAZIDE HYDROCHLORIDE\LEVODOPA [Suspect]
     Active Substance: BENSERAZIDE HYDROCHLORIDE\LEVODOPA
     Indication: Product used for unknown indication
     Dosage: 62.5 MG 3X/D  MAXIMUM ; AS NECESSARY
     Route: 065
  18. MELATONIN [Concomitant]
     Active Substance: MELATONIN
     Dosage: STRENGTH: 3 MG
     Route: 065
  19. TEMESTA [Concomitant]
     Route: 065
     Dates: start: 20221027, end: 20221105
  20. LEVOFLOXACIN [Concomitant]
     Active Substance: LEVOFLOXACIN
     Dosage: LEVOFLOXACIN: 500MG
     Route: 065
     Dates: start: 20220923, end: 20221102
  21. RIFAMPIN [Concomitant]
     Active Substance: RIFAMPIN
     Route: 065
     Dates: start: 20220923, end: 20221102
  22. EXFORGE HCT [Concomitant]
     Active Substance: AMLODIPINE BESYLATE\HYDROCHLOROTHIAZIDE\VALSARTAN
     Route: 065
     Dates: end: 20221106
  23. CLOZAPINE [Concomitant]
     Active Substance: CLOZAPINE
     Route: 065
     Dates: end: 20221107
  24. AMLODIPINE [Concomitant]
     Active Substance: AMLODIPINE BESYLATE
     Route: 065
  25. CARVEDILOL [Concomitant]
     Active Substance: CARVEDILOL
     Route: 065
     Dates: start: 20221029
  26. MOVICOL [Concomitant]
     Active Substance: POLYETHYLENE GLYCOL 3350\POTASSIUM CHLORIDE\SODIUM BICARBONATE\SODIUM CHLORIDE
     Route: 065
  27. DAFALGAN [Concomitant]
     Active Substance: ACETAMINOPHEN
     Route: 065
  28. QUETIAPINE [Concomitant]
     Active Substance: QUETIAPINE
     Route: 065
  29. ONDANSETRON [Concomitant]
     Active Substance: ONDANSETRON
     Dosage: AS NECESSARY
     Route: 065
  30. SODIUM PICOSULFATE [Concomitant]
     Active Substance: SODIUM PICOSULFATE
     Dosage: AS NECESSARY
     Route: 065
  31. PREGABALIN [Concomitant]
     Active Substance: PREGABALIN
     Dosage: AS NECESSARY
     Route: 065
     Dates: end: 202210
  32. ENOXAPARIN SODIUM [Concomitant]
     Active Substance: ENOXAPARIN SODIUM
     Route: 065

REACTIONS (7)
  - Confusional state [Recovering/Resolving]
  - Agitation [Recovering/Resolving]
  - Hallucination, auditory [Recovering/Resolving]
  - Hallucination, auditory [Recovering/Resolving]
  - Parkinson^s disease [Unknown]
  - Parkinson^s disease psychosis [Unknown]
  - Poor quality sleep [Unknown]

NARRATIVE: CASE EVENT DATE: 20220101
